FAERS Safety Report 5660531-3 (Version None)
Quarter: 2008Q1

REPORT INFORMATION
  Report Type: 
  Country: None (occurrence: None)
  Receive Date: 20080311
  Receipt Date: 20071105
  Transmission Date: 20080703
  Serious: No
  Sender: FDA-Public Use
  Company Number: US-BAYER-200713633BCC

PATIENT
  Age: 80 Year
  Sex: Female
  Weight: 82 kg

DRUGS (5)
  1. ALEVE [Suspect]
     Indication: PAIN
     Dosage: UNIT DOSE: 220 MG
     Route: 048
     Dates: start: 20071102
  2. LIPITOR [Concomitant]
  3. LEVOXYL [Concomitant]
  4. TOPROL [Concomitant]
  5. DIAVAN [Concomitant]

REACTIONS (1)
  - BURSITIS [None]
